FAERS Safety Report 5546585-3 (Version None)
Quarter: 2007Q4

REPORT INFORMATION
  Report Type: 
  Country: None (occurrence: None)
  Receive Date: 20071211
  Receipt Date: 20071203
  Transmission Date: 20080405
  Serious: Yes (Death)
  Sender: FDA-Public Use
  Company Number: JP-MERCK-0710USA04065

PATIENT
  Sex: Male

DRUGS (4)
  1. PEPCID [Suspect]
     Route: 042
     Dates: start: 20070918, end: 20071002
  2. PHENYTOIN SODIUM CAP [Concomitant]
     Route: 065
  3. HEPARIN SODIUM [Concomitant]
     Route: 065
  4. PHENOBARBITAL TAB [Concomitant]
     Route: 065

REACTIONS (1)
  - PANCYTOPENIA [None]
